FAERS Safety Report 18286606 (Version 1)
Quarter: 2020Q3

REPORT INFORMATION
  Report Type: Report from Study
  Country: None (occurrence: BR)
  Receive Date: 20200921
  Receipt Date: 20200921
  Transmission Date: 20201103
  Serious: Yes (Hospitalization, Other)
  Sender: FDA-Public Use
  Company Number: BR-ABBVIE-20K-020-3568267-00

PATIENT
  Age: 74 Year
  Sex: Male
  Weight: 85 kg

DRUGS (5)
  1. HUMIRA [Suspect]
     Active Substance: ADALIMUMAB
     Indication: PSORIASIS
     Dosage: LOADING DOSAGE
     Route: 058
     Dates: start: 20190625, end: 20190625
  2. HUMIRA [Suspect]
     Active Substance: ADALIMUMAB
     Route: 058
     Dates: end: 2020
  3. MIRTAZAPINE. [Concomitant]
     Active Substance: MIRTAZAPINE
     Indication: VASCULAR DEMENTIA
  4. HUMIRA [Suspect]
     Active Substance: ADALIMUMAB
     Route: 058
     Dates: start: 2020
  5. QUETIAPINE. [Concomitant]
     Active Substance: QUETIAPINE
     Indication: VASCULAR DEMENTIA

REACTIONS (11)
  - Bedridden [Recovering/Resolving]
  - Cardiac failure [Recovering/Resolving]
  - Ischaemic stroke [Recovered/Resolved]
  - Vascular dementia [Recovered/Resolved]
  - Respiratory failure [Recovering/Resolving]
  - Hypophagia [Recovering/Resolving]
  - Gait disturbance [Recovering/Resolving]
  - Pneumonia [Recovered/Resolved]
  - Acute kidney injury [Recovering/Resolving]
  - Asthenia [Recovering/Resolving]
  - Urinary tract infection [Recovered/Resolved]

NARRATIVE: CASE EVENT DATE: 201911
